FAERS Safety Report 5046277-3 (Version None)
Quarter: 2006Q2

REPORT INFORMATION
  Report Type: 
  Country: None (occurrence: None)
  Receive Date: 20060629
  Receipt Date: 20060616
  Transmission Date: 20061013
  Serious: Yes (Death, Hospitalization, Other)
  Sender: FDA-Public Use
  Company Number: 2006053955

PATIENT
  Age: 77 Year
  Sex: Male
  Weight: 78.6 kg

DRUGS (10)
  1. TIKOSYN [Suspect]
     Indication: ATRIAL FIBRILLATION
     Dosage: 1000 MCG (500 MCG, BID INTERVAL: EVERY DAY), ORAL
     Route: 048
     Dates: start: 20040101
  2. PROTONIX [Concomitant]
  3. DILANTIN [Concomitant]
  4. LEVOTHYROXINE SODIUM [Concomitant]
  5. ATENOLOL [Concomitant]
  6. FUROSEMIDE [Concomitant]
  7. LANOXIN [Concomitant]
  8. ASPIRIN [Concomitant]
  9. MAGNESIUM OXIDE (MAGNESIUM OXIDE) [Concomitant]
  10. MULTIVITAMIN [Concomitant]

REACTIONS (1)
  - DYSPNOEA [None]
